FAERS Safety Report 16264859 (Version 2)
Quarter: 2019Q2

REPORT INFORMATION
  Report Type: Spontaneous
  Country: US (occurrence: US)
  Receive Date: 20190502
  Receipt Date: 20190506
  Transmission Date: 20190711
  Serious: Yes (Death, Hospitalization)
  Sender: FDA-Public Use
  Company Number: US-PFIZER INC-2019187053

PATIENT
  Age: 42 Year
  Sex: Male

DRUGS (3)
  1. MORPHINE SULFATE. [Suspect]
     Active Substance: MORPHINE SULFATE
     Indication: POSTOPERATIVE ANALGESIA
     Dosage: 4 MG, UNK
     Route: 030
  2. NALOXONE [Concomitant]
     Active Substance: NALOXONE
     Dosage: 120 UG (THREE 40 UG DOSES)
  3. FENTANYL. [Concomitant]
     Active Substance: FENTANYL
     Dosage: UNK

REACTIONS (3)
  - Hypoxic-ischaemic encephalopathy [Fatal]
  - Brain death [Fatal]
  - Cardiac arrest [Fatal]
